FAERS Safety Report 18751964 (Version 1)
Quarter: 2021Q1

REPORT INFORMATION
  Report Type: Spontaneous
  Country: US (occurrence: US)
  Receive Date: 20210118
  Receipt Date: 20210118
  Transmission Date: 20210419
  Serious: Yes (Hospitalization, Other)
  Sender: FDA-Public Use
  Company Number: US-MACLEODS PHARMACEUTICALS US LTD-MAC2021029785

PATIENT

DRUGS (4)
  1. QUETIAPINE. [Suspect]
     Active Substance: QUETIAPINE
     Indication: SCHIZOAFFECTIVE DISORDER
     Dosage: 250 MILLIGRAM, BID
     Route: 048
  2. FLUOXETINE [Suspect]
     Active Substance: FLUOXETINE HYDROCHLORIDE
     Indication: SCHIZOAFFECTIVE DISORDER
     Dosage: 60 MILLIGRAM, QD
     Route: 048
  3. FLUOXETINE [Suspect]
     Active Substance: FLUOXETINE HYDROCHLORIDE
     Dosage: 600 MILLIGRAM, SINGLE
     Route: 048
  4. QUETIAPINE. [Suspect]
     Active Substance: QUETIAPINE
     Dosage: 4700 MILLIGRAM, SINGLE
     Route: 048

REACTIONS (7)
  - Disorientation [Recovered/Resolved]
  - Intentional overdose [Unknown]
  - Sinus tachycardia [Unknown]
  - Agitation [Unknown]
  - Heart rate increased [Unknown]
  - Somnolence [Recovered/Resolved]
  - Suicide attempt [Unknown]
